FAERS Safety Report 21527390 (Version 1)
Quarter: 2022Q4

REPORT INFORMATION
  Report Type: Spontaneous
  Country: US (occurrence: US)
  Receive Date: 20221031
  Receipt Date: 20221031
  Transmission Date: 20230112
  Serious: Yes (Hospitalization, Other)
  Sender: FDA-Public Use
  Company Number: US-SA-SAC20221029000261

PATIENT
  Age: 61 Year
  Sex: Male

DRUGS (18)
  1. DUPIXENT [Suspect]
     Active Substance: DUPILUMAB
     Indication: Asthma
     Dosage: 300 MG, QOW
     Route: 058
     Dates: start: 20210722
  2. DICLOFENAC [Concomitant]
     Active Substance: DICLOFENAC
  3. FLUOXETINE [Concomitant]
     Active Substance: FLUOXETINE HYDROCHLORIDE
  4. INH [Concomitant]
     Active Substance: ISONIAZID
  5. IBUPROFEN [Concomitant]
     Active Substance: IBUPROFEN
  6. METFORMIN [Concomitant]
     Active Substance: METFORMIN HYDROCHLORIDE
  7. OMEPRAZOLE [Concomitant]
     Active Substance: OMEPRAZOLE
  8. ONDANSETRON [Concomitant]
     Active Substance: ONDANSETRON
  9. OXYBUTYNIN [Concomitant]
     Active Substance: OXYBUTYNIN
  10. PREDNISONE [Concomitant]
     Active Substance: PREDNISONE
     Dosage: 20 MG
  11. PREDNISONE [Concomitant]
     Active Substance: PREDNISONE
     Dosage: 5 MG
  12. PROMETHAZINE [Concomitant]
     Active Substance: PROMETHAZINE HYDROCHLORIDE
  13. QUETIAPINE [Concomitant]
     Active Substance: QUETIAPINE
     Dosage: 150 MG
  14. QUETIAPINE [Concomitant]
     Active Substance: QUETIAPINE
     Dosage: 50 MG
  15. SPIRIVA [Concomitant]
     Active Substance: TIOTROPIUM BROMIDE MONOHYDRATE
  16. TRAZODONE [Concomitant]
     Active Substance: TRAZODONE HYDROCHLORIDE
     Dosage: 150 MG
  17. TRAZODONE [Concomitant]
     Active Substance: TRAZODONE HYDROCHLORIDE
     Dosage: 50 MG
  18. THERA-M [Concomitant]

REACTIONS (1)
  - Intracranial aneurysm [Unknown]
